FAERS Safety Report 19574492 (Version 4)
Quarter: 2025Q4

REPORT INFORMATION
  Report Type: Report from Study
  Country: CA (occurrence: CA)
  Receive Date: 20210719
  Receipt Date: 20251226
  Transmission Date: 20260117
  Serious: Yes (Hospitalization)
  Sender: BIOGEN
  Company Number: CA-BIOGEN-2020BI00910322

PATIENT
  Age: 26 Year
  Sex: Female

DRUGS (6)
  1. TYSABRI [Suspect]
     Active Substance: NATALIZUMAB
     Indication: Multiple sclerosis
     Dosage: DOSAGE TEXT:INFUSED OVER 1 HOUR
     Dates: start: 20160712
  2. TYSABRI [Suspect]
     Active Substance: NATALIZUMAB
     Dates: start: 20160712, end: 20251105
  3. TYSABRI [Suspect]
     Active Substance: NATALIZUMAB
     Dates: start: 20160712
  4. TYSABRI [Suspect]
     Active Substance: NATALIZUMAB
  5. TYSABRI [Suspect]
     Active Substance: NATALIZUMAB
     Dates: start: 20160712
  6. LETROZOLE [Concomitant]
     Active Substance: LETROZOLE
     Indication: Product used for unknown indication
     Dosage: DOSAGE TEXT:2.5 MG PO DIE FOR 5 DAYS

REACTIONS (5)
  - Breech presentation [Recovered/Resolved]
  - Maternal exposure during pregnancy [Recovered/Resolved]
  - Fatigue [Unknown]
  - Prescribed underdose [Recovered/Resolved]
  - Postoperative wound infection [Recovered/Resolved]

NARRATIVE: CASE EVENT DATE: 20160712
